FAERS Safety Report 4357518-X (Version None)
Quarter: 2004Q2

REPORT INFORMATION
  Report Type: 
  Country: None (occurrence: None)
  Receive Date: 20040511
  Receipt Date: 20040511
  Transmission Date: 20050107
  Serious: Yes (Hospitalization)
  Sender: FDA-Public Use
  Company Number: None

PATIENT
  Age: 55 Year
  Sex: Female
  Weight: 85.7 kg

DRUGS (18)
  1. DYAZIDE [Suspect]
     Indication: HYPERTENSION
     Dosage: 37.5 /25 ONE QD CHRONIC
  2. LISINOPRIL [Suspect]
     Indication: HYPERTENSION
     Dosage: 20 MG PO DAILY CHRONIC
     Route: 048
  3. LEVOXYL [Concomitant]
  4. COMBIVENT [Concomitant]
  5. FLOVENT [Concomitant]
  6. ULTRACET [Concomitant]
  7. LIDODERM [Concomitant]
  8. TOPAMAX [Concomitant]
  9. KADIAN [Concomitant]
  10. REGLAN [Concomitant]
  11. IRON [Concomitant]
  12. NEXIUM [Concomitant]
  13. NOVOLIN 70/30 [Concomitant]
  14. AVANDIA [Concomitant]
  15. ASPIRIN [Concomitant]
  16. ZYRTEC [Concomitant]
  17. ZOCOR [Concomitant]
  18. AMITRIPTYLINE HCL [Concomitant]

REACTIONS (3)
  - BLOOD POTASSIUM DECREASED [None]
  - GOUT [None]
  - HYPOTENSION [None]
